FAERS Safety Report 21902541 (Version 1)
Quarter: 2023Q1

REPORT INFORMATION
  Report Type: Spontaneous
  Country: US (occurrence: US)
  Receive Date: 20230124
  Receipt Date: 20230124
  Transmission Date: 20230418
  Serious: Yes (Other)
  Sender: FDA-Public Use
  Company Number: US-ASTELLAS-2023US002359

PATIENT
  Age: 97 Year
  Sex: Male

DRUGS (1)
  1. MYRBETRIQ [Suspect]
     Active Substance: MIRABEGRON
     Indication: Product used for unknown indication
     Dosage: 25 MG, ONCE DAILY (FOR APPROXIMATELY THREE MONTHS)
     Route: 065
     Dates: start: 2022

REACTIONS (2)
  - Hallucination [Unknown]
  - Ill-defined disorder [Unknown]
